FAERS Safety Report 20068666 (Version 1)
Quarter: 2021Q4

REPORT INFORMATION
  Report Type: Spontaneous
  Country: US (occurrence: US)
  Receive Date: 20211115
  Receipt Date: 20211115
  Transmission Date: 20220304
  Serious: No
  Sender: FDA-Public Use
  Company Number: US-PERRIGO-21US000084

PATIENT
  Sex: Female
  Weight: 65.76 kg

DRUGS (7)
  1. BUDESONIDE [Suspect]
     Active Substance: BUDESONIDE
     Indication: Colitis microscopic
     Dosage: 9 MG, QD
     Route: 048
     Dates: start: 20201017, end: 20201115
  2. BUDESONIDE [Suspect]
     Active Substance: BUDESONIDE
     Dosage: 6 MG, QD
     Route: 048
     Dates: start: 20201116, end: 20201215
  3. BUDESONIDE [Suspect]
     Active Substance: BUDESONIDE
     Dosage: 3 MG, QD
     Route: 048
     Dates: start: 20201216, end: 20210104
  4. AUGMENTIN [Suspect]
     Active Substance: AMOXICILLIN\CLAVULANATE POTASSIUM
     Indication: Root canal infection
     Dosage: 875 MG/125 MG, EVERY 12 HOURS
     Route: 048
     Dates: start: 20201231, end: 20210104
  5. METAMUCIL                          /00029101/ [Concomitant]
     Indication: Colitis microscopic
     Dosage: UNK
     Route: 065
     Dates: start: 20201217
  6. LEVOTHYROXINE [Concomitant]
     Active Substance: LEVOTHYROXINE
     Indication: Hypothyroidism
     Dosage: 112 MG, UNKNOWN
     Route: 065
     Dates: start: 2005
  7. LORATADINE [Concomitant]
     Active Substance: LORATADINE
     Indication: Seasonal allergy
     Dosage: UNK
     Route: 065

REACTIONS (11)
  - Skin warm [Not Recovered/Not Resolved]
  - Swelling [Recovering/Resolving]
  - Lymphadenopathy [Recovering/Resolving]
  - Eye swelling [Recovering/Resolving]
  - Pruritus [Not Recovered/Not Resolved]
  - Swelling face [Recovering/Resolving]
  - Arthralgia [Recovering/Resolving]
  - Myalgia [Recovering/Resolving]
  - Immunosuppression [Unknown]
  - Root canal infection [Recovering/Resolving]
  - Off label use [Recovered/Resolved]

NARRATIVE: CASE EVENT DATE: 20200101
